FAERS Safety Report 8813042 (Version 1)
Quarter: 2012Q4

REPORT INFORMATION
  Report Type: 
  Country: GB (occurrence: GB)
  Receive Date: 20120927
  Receipt Date: 20120927
  Transmission Date: 20130627
  Serious: Yes (Other)
  Sender: FDA-Public Use
  Company Number: GB-ASTRAZENECA-2012SE73131

PATIENT
  Age: 50 Year

DRUGS (13)
  1. OMEPRAZOLE [Suspect]
     Route: 048
     Dates: start: 20120801
  2. ASPIRIN [Concomitant]
     Route: 048
     Dates: start: 20110101
  3. BISOPROLOL [Concomitant]
     Route: 048
     Dates: start: 20110101
  4. BUMETANIDE [Concomitant]
     Route: 048
     Dates: start: 20110101
  5. DIGOXIN [Concomitant]
     Route: 048
     Dates: start: 20120101
  6. LACTULOSE [Concomitant]
     Route: 048
     Dates: start: 20110101
  7. METFORMIN [Concomitant]
     Route: 048
     Dates: start: 20110101
  8. MIRTAZAPINE [Concomitant]
     Route: 048
     Dates: start: 20120101
  9. PARACETAMOL [Concomitant]
     Route: 048
     Dates: start: 20110101
  10. RAMIPRIL [Concomitant]
     Route: 048
     Dates: start: 20110101
  11. SIMVASTATIN [Concomitant]
     Route: 048
     Dates: start: 20110101
  12. SPIRONOLACTONE [Concomitant]
     Route: 048
     Dates: start: 20120101
  13. THIAMINE [Concomitant]
     Route: 048
     Dates: start: 20110101

REACTIONS (1)
  - Chapped lips [Unknown]
